FAERS Safety Report 6002656-9 (Version None)
Quarter: 2008Q4

REPORT INFORMATION
  Report Type: 
  Country: None (occurrence: None)
  Receive Date: 20081215
  Receipt Date: 20071114
  Transmission Date: 20090506
  Serious: No
  Sender: FDA-Public Use
  Company Number: US-AMGEN-KDL252726

PATIENT
  Sex: Female

DRUGS (1)
  1. ENBREL [Suspect]
     Indication: PSORIATIC ARTHROPATHY
     Route: 058
     Dates: start: 20040122

REACTIONS (6)
  - ARTHRALGIA [None]
  - COUGH [None]
  - PAIN [None]
  - PYREXIA [None]
  - SINUSITIS [None]
  - TENOSYNOVITIS STENOSANS [None]
